FAERS Safety Report 5868792-2 (Version None)
Quarter: 2008Q3

REPORT INFORMATION
  Report Type: 
  Country: None (occurrence: None)
  Receive Date: 20080828
  Receipt Date: 20080817
  Transmission Date: 20090109
  Serious: No
  Sender: FDA-Public Use
  Company Number: TAP2008Q00784

PATIENT
  Age: 59 Year
  Sex: Female

DRUGS (11)
  1. PREVACID [Suspect]
     Indication: GASTROOESOPHAGEAL REFLUX DISEASE
     Dosage: 30 MG (30 MG, 1 IN 1 D), PER ORAL
     Route: 048
     Dates: start: 20080701
  2. OXYCODONE HCL [Concomitant]
  3. XANAX [Concomitant]
  4. AMBIEN CR [Concomitant]
  5. LISINOPRIL (LISINORPIL) [Concomitant]
  6. LEVOTHYROXINE SODIUM [Concomitant]
  7. NORVASC [Concomitant]
  8. COSPOT (COSOPT) [Concomitant]
  9. XALATAN [Concomitant]
  10. FLONASE [Concomitant]
  11. LASIX (FUUROSEMIDE) [Concomitant]

REACTIONS (3)
  - DRY EYE [None]
  - VISION BLURRED [None]
  - VISUAL ACUITY REDUCED [None]
